FAERS Safety Report 20718362 (Version 1)
Quarter: 2022Q2

REPORT INFORMATION
  Report Type: Spontaneous
  Country: US (occurrence: US)
  Receive Date: 20220418
  Receipt Date: 20220418
  Transmission Date: 20220721
  Serious: No
  Sender: FDA-Public Use
  Company Number: US-UCBSA-2021041662

PATIENT
  Sex: Male
  Weight: 117.9 kg

DRUGS (3)
  1. NEUPRO [Suspect]
     Active Substance: ROTIGOTINE
     Indication: Parkinson^s disease
     Dosage: HALF OF 4 MG
     Dates: start: 20210826
  2. CARBIDOPA\LEVODOPA [Concomitant]
     Active Substance: CARBIDOPA\LEVODOPA
     Indication: Product used for unknown indication
  3. PRAMIPEXOLE [Concomitant]
     Active Substance: PRAMIPEXOLE
     Indication: Product used for unknown indication

REACTIONS (7)
  - Asthenia [Unknown]
  - Abdominal pain upper [Not Recovered/Not Resolved]
  - Dizziness [Not Recovered/Not Resolved]
  - Somnolence [Unknown]
  - Diarrhoea [Not Recovered/Not Resolved]
  - Dysstasia [Unknown]
  - Wrong technique in product usage process [Unknown]
